FAERS Safety Report 7705277-2 (Version None)
Quarter: 2011Q3

REPORT INFORMATION
  Report Type: 
  Country: None (occurrence: None)
  Receive Date: 20110824
  Receipt Date: 20110719
  Transmission Date: 20111222
  Serious: No
  Sender: FDA-Public Use
  Company Number: US-MYLANLABS-2011S1015182

PATIENT
  Sex: Female

DRUGS (1)
  1. VALACYCLOVIR HYDROCHLORIDE [Suspect]
     Indication: HERPES VIRUS INFECTION
     Route: 048
     Dates: start: 20110628

REACTIONS (1)
  - BACK PAIN [None]
